FAERS Safety Report 5978837-7 (Version None)
Quarter: 2008Q4

REPORT INFORMATION
  Report Type: 
  Country: None (occurrence: None)
  Receive Date: 20081204
  Receipt Date: 20081127
  Transmission Date: 20090506
  Serious: Yes (Other)
  Sender: FDA-Public Use
  Company Number: PHHY2008DE29819

PATIENT
  Sex: Male

DRUGS (3)
  1. ZOMETA [Suspect]
     Indication: METASTASES TO BONE
     Dosage: 4 MG EVERY 4 WEEKS
     Route: 042
     Dates: start: 20020101, end: 20060301
  2. VELCADE [Concomitant]
     Indication: PLASMACYTOMA
     Dosage: 1.3 MG/M^2
     Dates: start: 20041001, end: 20041201
  3. THALIDOMIDE [Concomitant]
     Indication: PLASMACYTOMA
     Dosage: 50 MG DAILY
     Dates: start: 20050301, end: 20050801

REACTIONS (1)
  - OSTEONECROSIS [None]
